FAERS Safety Report 8286630 (Version 2)
Quarter: 2012Q4

REPORT INFORMATION
  Report Type: 
  Country: FR (occurrence: FR)
  Receive Date: 20111213
  Receipt Date: 20121128
  Transmission Date: 20130627
  Serious: Yes (Other)
  Sender: FDA-Public Use
  Company Number: FR-JNJFOC-20110605592

PATIENT
  Sex: Male
  Weight: 20.1 kg

DRUGS (1)
  1. NIZORAL [Suspect]
     Indication: TESTOTOXICOSIS
     Route: 048
     Dates: start: 200901

REACTIONS (3)
  - Adrenal insufficiency [Not Recovered/Not Resolved]
  - Off label use [Not Recovered/Not Resolved]
  - Therapeutic response unexpected [Unknown]
